FAERS Safety Report 18739625 (Version 1)
Quarter: 2021Q1

REPORT INFORMATION
  Report Type: Spontaneous
  Country: US (occurrence: US)
  Receive Date: 20210113
  Receipt Date: 20210113
  Transmission Date: 20210419
  Serious: Yes (Hospitalization)
  Sender: FDA-Public Use
  Company Number: None

PATIENT
  Age: 35 Year
  Sex: Male
  Weight: 72.12 kg

DRUGS (1)
  1. THRYO?TABS (LEVOTHYROXINE SODIUM) [Suspect]
     Active Substance: LEVOTHYROXINE SODIUM
     Indication: PRODUCT USED FOR UNKNOWN INDICATION
     Route: 048
     Dates: start: 20200820, end: 20200820

REACTIONS (9)
  - Jaw fracture [None]
  - Tooth infection [None]
  - Pain in jaw [None]
  - Retention cyst [None]
  - Facial pain [None]
  - Malpositioned teeth [None]
  - Sports injury [None]
  - Bone loss [None]
  - Sinus polyp [None]

NARRATIVE: CASE EVENT DATE: 20201027
